FAERS Safety Report 5189801-2 (Version None)
Quarter: 2006Q4

REPORT INFORMATION
  Report Type: 
  Country: None (occurrence: None)
  Receive Date: 20061215
  Receipt Date: 20061206
  Transmission Date: 20070319
  Serious: Yes (Other)
  Sender: FDA-Public Use
  Company Number: 2006136358

PATIENT
  Age: 65 Year
  Sex: Female

DRUGS (2)
  1. DIABINESE [Suspect]
     Indication: DIABETES MELLITUS
     Dosage: 250 MG (250 MG, 1 IN 1 D), ORAL
     Route: 048
  2. ALL OTHER THERAPEUTIC PRODUCTS (ALL OTHER THERAPEUTIC PRODUCTS) [Concomitant]

REACTIONS (5)
  - DIABETES MELLITUS INADEQUATE CONTROL [None]
  - DRUG INEFFECTIVE [None]
  - FORMICATION [None]
  - HEADACHE [None]
  - PARAESTHESIA ORAL [None]
